FAERS Safety Report 24730331 (Version 1)
Quarter: 2024Q4

REPORT INFORMATION
  Report Type: Spontaneous
  Country: US (occurrence: US)
  Receive Date: 20241213
  Receipt Date: 20241213
  Transmission Date: 20250115
  Serious: Yes (Other)
  Sender: MERCK
  Company Number: US-009507513-2412USA004717

PATIENT
  Sex: Female

DRUGS (2)
  1. KEYTRUDA [Suspect]
     Active Substance: PEMBROLIZUMAB
  2. CISPLATIN [Suspect]
     Active Substance: CISPLATIN

REACTIONS (2)
  - Renal impairment [Unknown]
  - Blood magnesium decreased [Unknown]
